FAERS Safety Report 6423547-5 (Version None)
Quarter: 2009Q4

REPORT INFORMATION
  Report Type: 
  Country: None (occurrence: None)
  Receive Date: 20091102
  Receipt Date: 20090803
  Transmission Date: 20100525
  Serious: No
  Sender: FDA-Public Use
  Company Number: A0794322A

PATIENT
  Age: 75 Year
  Sex: Male
  Weight: 93.2 kg

DRUGS (3)
  1. RYTHMOL SR [Suspect]
     Indication: ATRIAL FIBRILLATION
     Dosage: 225MG PER DAY
     Route: 048
     Dates: start: 20090627, end: 20090628
  2. WARFARIN SODIUM [Concomitant]
  3. UNKNOWN MEDICATION [Concomitant]

REACTIONS (4)
  - DIZZINESS [None]
  - DRY MOUTH [None]
  - FATIGUE [None]
  - NAUSEA [None]
